FAERS Safety Report 11090966 (Version 2)
Quarter: 2015Q4

REPORT INFORMATION
  Report Type: Spontaneous
  Country: US (occurrence: US)
  Receive Date: 20150505
  Receipt Date: 20151026
  Transmission Date: 20160304
  Serious: No
  Sender: FDA-Public Use
  Company Number: US-BAYER-2015-184460

PATIENT
  Age: 12 Year
  Sex: Female
  Weight: 49.43 kg

DRUGS (2)
  1. MILK OF MAGNESIA ORIGINAL [Suspect]
     Active Substance: MAGNESIUM HYDROXIDE
     Indication: CONSTIPATION
     Dosage: 3 DF, QD
     Route: 048
     Dates: start: 20151020
  2. MIRALAX [Suspect]
     Active Substance: POLYETHYLENE GLYCOL 3350
     Indication: CONSTIPATION
     Dosage: 1/2 DOSE, PRN
     Route: 048
     Dates: start: 20141210

REACTIONS (3)
  - Diarrhoea [Recovered/Resolved]
  - Drug administered to patient of inappropriate age [Unknown]
  - Drug ineffective [None]

NARRATIVE: CASE EVENT DATE: 20141210
